FAERS Safety Report 4601017-4 (Version None)
Quarter: 2005Q1

REPORT INFORMATION
  Report Type: 
  Country: None (occurrence: None)
  Receive Date: 20050127
  Receipt Date: 20041012
  Transmission Date: 20050727
  Serious: No
  Sender: FDA-Public Use
  Company Number: USA041183773

PATIENT
  Age: 16 Year
  Sex: Female

DRUGS (1)
  1. STRATTERA [Suspect]
     Dosage: 40 MG

REACTIONS (2)
  - EYE PAIN [None]
  - INTRAOCULAR PRESSURE INCREASED [None]
